FAERS Safety Report 9838513 (Version 1)
Quarter: 2014Q1

REPORT INFORMATION
  Report Type: Spontaneous
  Country: US (occurrence: US)
  Receive Date: 20140123
  Receipt Date: 20140123
  Transmission Date: 20141002
  Serious: Yes (Hospitalization)
  Sender: FDA-Public Use
  Company Number: US-PFIZER INC-2014020191

PATIENT
  Age: 79 Year
  Sex: Male
  Weight: 95 kg

DRUGS (14)
  1. TIKOSYN [Suspect]
     Dosage: 125 UG, 2X/DAY
     Route: 048
     Dates: end: 20140120
  2. ADVAIR DISKUS [Concomitant]
     Dosage: 250/50 MCG, 2X/DAY
  3. ALBUTEROL [Concomitant]
     Dosage: ONE INHALATION 4X/DAY
  4. FLONASE [Concomitant]
     Dosage: DAILY
  5. LASIX [Concomitant]
     Dosage: 20 MG, 1X/DAY
  6. NEXIUM [Concomitant]
     Dosage: 40 MG, 1X/DAY
  7. PERCOCET [Concomitant]
     Dosage: 5/325, EVERY SIX HOURS AS NEEDED
  8. ROPINIROLE [Concomitant]
     Dosage: 0.5 MG, AS NEEDED (AT BED TIME)
  9. SPIRIVA [Concomitant]
     Dosage: DAILY
  10. CITALOPRAM [Concomitant]
     Dosage: 40 MG, 1X/DAY
  11. METHIMAZOLE [Concomitant]
     Dosage: 5 MG, 3X/DAY
  12. METOPROLOL [Concomitant]
     Dosage: 25 MG, 2X/DAY
  13. FLOMAX [Concomitant]
     Dosage: 0.4 MG, DAILY
  14. SINGULAIR [Concomitant]
     Dosage: 10 MG, 1X/DAY

REACTIONS (3)
  - Acute respiratory failure [Unknown]
  - Chronic obstructive pulmonary disease [Unknown]
  - Dyspnoea [Unknown]
